FAERS Safety Report 14601206 (Version 3)
Quarter: 2019Q2

REPORT INFORMATION
  Report Type: Report from Study
  Country: US (occurrence: US)
  Receive Date: 20180305
  Receipt Date: 20190606
  Transmission Date: 20190711
  Serious: Yes (Other)
  Sender: FDA-Public Use
  Company Number: US-ALEXION PHARMACEUTICALS INC.-A201802279

PATIENT
  Sex: Male

DRUGS (1)
  1. SOLIRIS [Suspect]
     Active Substance: ECULIZUMAB
     Indication: PRODUCT USED FOR UNKNOWN INDICATION
     Route: 065

REACTIONS (7)
  - Constipation [Recovered/Resolved]
  - Nausea [Unknown]
  - Back pain [Unknown]
  - Prostate cancer recurrent [Not Recovered/Not Resolved]
  - Dysphagia [Unknown]
  - Muscular weakness [Unknown]
  - Pain in extremity [Unknown]
